FAERS Safety Report 13637043 (Version 2)
Quarter: 2017Q3

REPORT INFORMATION
  Report Type: Spontaneous
  Country: US (occurrence: US)
  Receive Date: 20170609
  Receipt Date: 20170703
  Transmission Date: 20171127
  Serious: Yes (Death, Other)
  Sender: FDA-Public Use
  Company Number: US-GLAXOSMITHKLINE-US2017086609

PATIENT
  Age: 77 Year
  Sex: Male

DRUGS (19)
  1. LANTUS [Concomitant]
     Active Substance: INSULIN GLARGINE
  2. LATANOPROST. [Concomitant]
     Active Substance: LATANOPROST
  3. TOUJEO [Concomitant]
     Active Substance: INSULIN GLARGINE
  4. FENOFIBRATE. [Concomitant]
     Active Substance: FENOFIBRATE
  5. ALBUTEROL SULFATE. [Concomitant]
     Active Substance: ALBUTEROL SULFATE
  6. VICTOZA [Concomitant]
     Active Substance: LIRAGLUTIDE
  7. GABAPENTIN. [Concomitant]
     Active Substance: GABAPENTIN
  8. TRANSDERM SCOP [Suspect]
     Active Substance: SCOPOLAMINE
     Indication: INCREASED UPPER AIRWAY SECRETION
     Dosage: UNK
     Dates: start: 20170310, end: 20170316
  9. DESLORATADINE. [Concomitant]
     Active Substance: DESLORATADINE
  10. AMITRIPTYLINE HYDROCHLORIDE. [Concomitant]
     Active Substance: AMITRIPTYLINE HYDROCHLORIDE
  11. FLUCONAZOLE. [Concomitant]
     Active Substance: FLUCONAZOLE
  12. CELECOXIB. [Concomitant]
     Active Substance: CELECOXIB
  13. METFORMIN [Concomitant]
     Active Substance: METFORMIN HYDROCHLORIDE
  14. NAPROXEN. [Concomitant]
     Active Substance: NAPROXEN
  15. MONTELUKAST SODIUM. [Concomitant]
     Active Substance: MONTELUKAST SODIUM
  16. TRIFLUOPERAZINE [Concomitant]
     Active Substance: TRIFLUOPERAZINE\TRIFLUOPERAZINE HYDROCHLORIDE
  17. AMLODIPINE BESYLATE AND BENAZEPRIL HYDROCHLORIDE [Concomitant]
     Active Substance: AMLODIPINE BESYLATE\BENAZEPRIL HYDROCHLORIDE
  18. NYSTATIN. [Concomitant]
     Active Substance: NYSTATIN
  19. OLANZAPINE. [Concomitant]
     Active Substance: OLANZAPINE

REACTIONS (3)
  - Death [Fatal]
  - Product quality issue [Unknown]
  - Off label use [Unknown]

NARRATIVE: CASE EVENT DATE: 20170316
